FAERS Safety Report 5592521-3 (Version None)
Quarter: 2008Q1

REPORT INFORMATION
  Report Type: 
  Country: None (occurrence: None)
  Receive Date: 20080111
  Receipt Date: 20080107
  Transmission Date: 20080703
  Serious: Yes (Other)
  Sender: FDA-Public Use
  Company Number: 2008SP000455

PATIENT
  Sex: Male

DRUGS (2)
  1. TEMODAL [Suspect]
     Indication: MALIGNANT GLIOMA
  2. HEPARIN [Concomitant]

REACTIONS (3)
  - HEPATOCELLULAR INJURY [None]
  - PHLEBITIS [None]
  - TRANSAMINASES INCREASED [None]
